FAERS Safety Report 12704397 (Version 1)
Quarter: 2016Q3

REPORT INFORMATION
  Report Type: Spontaneous
  Country: US (occurrence: US)
  Receive Date: 20160831
  Receipt Date: 20160831
  Transmission Date: 20161109
  Serious: No
  Sender: FDA-Public Use
  Company Number: US-BAYER-2016-163927

PATIENT
  Age: 71 Year
  Sex: Male
  Weight: 81.18 kg

DRUGS (10)
  1. MIRALAX [Suspect]
     Active Substance: POLYETHYLENE GLYCOL 3350
     Indication: CONSTIPATION
     Dosage: 1 DF, BID
     Route: 048
  2. PROPRANOLOL [Concomitant]
     Active Substance: PROPRANOLOL\PROPRANOLOL HYDROCHLORIDE
  3. DILTIAZEM. [Concomitant]
     Active Substance: DILTIAZEM
  4. VITAMIN D [Concomitant]
     Active Substance: CHOLECALCIFEROL
  5. GANCICLOVIR. [Concomitant]
     Active Substance: GANCICLOVIR
  6. DORZOLAMIDE [Concomitant]
     Active Substance: DORZOLAMIDE
  7. XALATAN [Concomitant]
     Active Substance: LATANOPROST
  8. PRIMIDONE. [Concomitant]
     Active Substance: PRIMIDONE
  9. PRADAXA [Concomitant]
     Active Substance: DABIGATRAN ETEXILATE MESYLATE
  10. CLONAZEPAM. [Concomitant]
     Active Substance: CLONAZEPAM

REACTIONS (2)
  - Rectal discharge [None]
  - Product use issue [None]
